FAERS Safety Report 10358289 (Version 2)
Quarter: 2014Q4

REPORT INFORMATION
  Report Type: Other
  Country: IT (occurrence: IT)
  Receive Date: 20140801
  Receipt Date: 20141120
  Transmission Date: 20150528
  Serious: Yes (Hospitalization)
  Sender: FDA-Public Use
  Company Number: IT-MYLAN-2014S1017834

PATIENT

DRUGS (4)
  1. IBUPROFEN. [Suspect]
     Active Substance: IBUPROFEN
     Indication: DRUG ABUSE
     Dosage: 6 G,TOTAL
     Route: 048
     Dates: start: 20140331, end: 20140331
  2. DICLOFENAC [Suspect]
     Active Substance: DICLOFENAC
     Indication: DRUG ABUSE
     Dosage: 500 MG,TOTAL
     Route: 048
     Dates: start: 20140331, end: 20140331
  3. AMOXICILLIN. [Suspect]
     Active Substance: AMOXICILLIN
     Indication: DRUG ABUSE
     Dosage: 7 G,TOTAL
     Route: 048
     Dates: start: 20140331, end: 20140331
  4. TACHIPIRINA [Suspect]
     Active Substance: ACETAMINOPHEN
     Indication: DRUG ABUSE
     Dosage: 5 G,TOTAL
     Route: 048
     Dates: start: 20140331, end: 20140331

REACTIONS (2)
  - Drug abuse [Recovered/Resolved]
  - Sopor [Recovered/Resolved]

NARRATIVE: CASE EVENT DATE: 20140331
